FAERS Safety Report 19388114 (Version 1)
Quarter: 2021Q2

REPORT INFORMATION
  Report Type: Spontaneous
  Country: US (occurrence: US)
  Receive Date: 20210608
  Receipt Date: 20210608
  Transmission Date: 20210717
  Serious: Yes (Other)
  Sender: FDA-Public Use
  Company Number: US-BAYER-2021-152724

PATIENT
  Age: 51 Year
  Sex: Female

DRUGS (2)
  1. ACETYLSALICYLIC ACID [Suspect]
     Active Substance: ASPIRIN
  2. BIVALIRUDIN. [Interacting]
     Active Substance: BIVALIRUDIN

REACTIONS (7)
  - Vaginal haemorrhage [None]
  - Catheter site haemorrhage [None]
  - Gastrointestinal haemorrhage [None]
  - Labelled drug-drug interaction medication error [None]
  - Contraindicated product administered [None]
  - Mouth haemorrhage [None]
  - Respiratory tract haemorrhage [None]
